FAERS Safety Report 18376737 (Version 1)
Quarter: 2020Q4

REPORT INFORMATION
  Report Type: Spontaneous
  Country: US (occurrence: US)
  Receive Date: 20201013
  Receipt Date: 20201013
  Transmission Date: 20210114
  Serious: No
  Sender: FDA-Public Use
  Company Number: US-MYLANLABS-2020M1085720

PATIENT
  Age: 68 Year
  Sex: Female
  Weight: 90 kg

DRUGS (1)
  1. EPINEPHRINE INJECTION USP AUTO-INJECTOR [Suspect]
     Active Substance: EPINEPHRINE
     Indication: HYPERSENSITIVITY
     Dosage: AS NEEDED
     Route: 030
     Dates: start: 20201004, end: 20201004

REACTIONS (1)
  - Device failure [Not Recovered/Not Resolved]

NARRATIVE: CASE EVENT DATE: 20201004
